FAERS Safety Report 6408445-5 (Version None)
Quarter: 2009Q4

REPORT INFORMATION
  Report Type: 
  Country: None (occurrence: None)
  Receive Date: 20091021
  Receipt Date: 20091013
  Transmission Date: 20100525
  Serious: Yes (Other)
  Sender: FDA-Public Use
  Company Number: US-JNJFOC-20091004840

PATIENT
  Sex: Female
  Weight: 60.78 kg

DRUGS (4)
  1. DURAGESIC-100 [Suspect]
     Indication: CERVIX CARCINOMA
     Route: 062
     Dates: start: 20090301, end: 20091009
  2. DURAGESIC-100 [Suspect]
     Route: 062
     Dates: start: 20091009
  3. NEXIUM [Concomitant]
     Indication: GASTRIC DISORDER
     Route: 048
  4. XANAX [Concomitant]
     Indication: SLEEP DISORDER
     Route: 048

REACTIONS (4)
  - DRUG INEFFECTIVE [None]
  - HYPERHIDROSIS [None]
  - PAIN [None]
  - PALPITATIONS [None]
